FAERS Safety Report 7817579-X (Version None)
Quarter: 2011Q4

REPORT INFORMATION
  Report Type: 
  Country: None (occurrence: None)
  Receive Date: 20111017
  Receipt Date: 20111006
  Transmission Date: 20120403
  Serious: Yes (Other)
  Sender: FDA-Public Use
  Company Number: PHHY2011PH89201

PATIENT
  Age: 20 Year
  Sex: Female

DRUGS (1)
  1. CLOFAZIMINE [Suspect]
     Indication: LEPROSY

REACTIONS (2)
  - DEPOSIT EYE [None]
  - SCLERAL PIGMENTATION [None]
